FAERS Safety Report 6688494-2 (Version None)
Quarter: 2010Q2

REPORT INFORMATION
  Report Type: 
  Country: None (occurrence: None)
  Receive Date: 20100413
  Receipt Date: 20100408
  Transmission Date: 20101027
  Serious: Yes (Other)
  Sender: FDA-Public Use
  Company Number: 2010SP020391

PATIENT
  Sex: Female

DRUGS (3)
  1. NASONEX [Suspect]
     Indication: DRUG USE FOR UNKNOWN INDICATION
  2. AVELOX [Suspect]
     Indication: DRUG USE FOR UNKNOWN INDICATION
     Dosage: PO
     Route: 047
  3. SALINE [Concomitant]

REACTIONS (5)
  - PAIN [None]
  - PRURITUS [None]
  - PYREXIA [None]
  - RASH GENERALISED [None]
  - SERUM SICKNESS [None]
